FAERS Safety Report 7981899-9 (Version None)
Quarter: 2011Q4

REPORT INFORMATION
  Report Type: 
  Country: None (occurrence: None)
  Receive Date: 20111213
  Receipt Date: 20111129
  Transmission Date: 20120403
  Serious: Yes (Hospitalization)
  Sender: FDA-Public Use
  Company Number: 2011AP002898

PATIENT
  Age: 43 Year
  Sex: Male

DRUGS (6)
  1. LISINOPRIL [Concomitant]
  2. AMITRIPTYLINE HCL [Concomitant]
  3. HYDROCHLOROTHIAZIDE [Concomitant]
  4. BUPROPION HCL [Concomitant]
  5. IBUPROFEN [Concomitant]
  6. LITHIUM CARBONATE [Suspect]
     Indication: PRODUCT USED FOR UNKNOWN INDICATION

REACTIONS (6)
  - ANTIPSYCHOTIC DRUG LEVEL INCREASED [None]
  - TREMOR [None]
  - BLOOD CREATININE INCREASED [None]
  - ATAXIA [None]
  - BLOOD UREA INCREASED [None]
  - TOXICITY TO VARIOUS AGENTS [None]
